FAERS Safety Report 6861348-4 (Version None)
Quarter: 2010Q3

REPORT INFORMATION
  Report Type: 
  Country: None (occurrence: None)
  Receive Date: 20100715
  Receipt Date: 20100630
  Transmission Date: 20110219
  Serious: Yes (Hospitalization)
  Sender: FDA-Public Use
  Company Number: GB-1182081

PATIENT
  Age: 46 Year
  Sex: Male

DRUGS (2)
  1. TROPICAMIDE [Suspect]
     Dosage: 1 GTT OPHTHALMIC
     Route: 047
     Dates: start: 20100430, end: 20100430
  2. VENTOLIN [Suspect]
     Indication: WHEEZING
     Dates: start: 20100401

REACTIONS (8)
  - ANAPHYLACTIC SHOCK [None]
  - FEELING ABNORMAL [None]
  - HYPOTENSION [None]
  - NAUSEA [None]
  - PALLOR [None]
  - PRESYNCOPE [None]
  - PSYCHOSOMATIC DISEASE [None]
  - SYNCOPE [None]
